FAERS Safety Report 19908750 (Version 3)
Quarter: 2021Q4

REPORT INFORMATION
  Report Type: Spontaneous
  Country: BR (occurrence: BR)
  Receive Date: 20211002
  Receipt Date: 20211027
  Transmission Date: 20220303
  Serious: Yes (Other)
  Sender: FDA-Public Use
  Company Number: BR-SA-SAC20210928001260

PATIENT
  Age: 63 Year
  Sex: Female
  Weight: 70 kg

DRUGS (8)
  1. ARAVA [Suspect]
     Active Substance: LEFLUNOMIDE
     Indication: Rheumatoid arthritis
     Dosage: UNK UNK, QW
     Route: 048
     Dates: end: 20210923
  2. DIOVAN [Concomitant]
     Active Substance: VALSARTAN
     Indication: Discomfort
     Dosage: 1 DF, QD
     Route: 048
  3. INDAPAMIDE [Concomitant]
     Active Substance: INDAPAMIDE
     Indication: Discomfort
     Dosage: 1 DF, QD
     Route: 048
  4. VITAMIN D NOS [Concomitant]
     Active Substance: VITAMIN D NOS
     Indication: Hypovitaminosis
     Dosage: 1 DF, QD
     Route: 048
  5. ZINPASS [Concomitant]
     Indication: Blood cholesterol abnormal
     Dosage: 1 DF, QD
     Route: 048
  6. GLIFAGE [Concomitant]
     Active Substance: METFORMIN HYDROCHLORIDE
     Indication: Blood glucose abnormal
     Dosage: 1 DF, QD
     Route: 048
  7. OSTEONUTRI [Concomitant]
     Dosage: 1 DF, QD
     Route: 048
  8. FLEBON [DIOSMIN] [Concomitant]
     Dosage: - INDICATION: CIRCULATION
     Route: 048

REACTIONS (2)
  - Dependence [Unknown]
  - Peripheral swelling [Recovering/Resolving]
